FAERS Safety Report 8925917 (Version 2)
Quarter: 2012Q4

REPORT INFORMATION
  Report Type: 
  Country: HR (occurrence: HR)
  Receive Date: 20121126
  Receipt Date: 20121128
  Transmission Date: 20130627
  Serious: Yes (Death, Other)
  Sender: FDA-Public Use
  Company Number: HR-ABBOTT-12P-216-1011927-00

PATIENT
  Age: 15 Month
  Sex: Male

DRUGS (1)
  1. SURVANTA [Suspect]
     Indication: RESPIRATORY FAILURE

REACTIONS (2)
  - Respiratory failure [Fatal]
  - Drug effect incomplete [Unknown]
